FAERS Safety Report 8048204-3 (Version None)
Quarter: 2012Q1

REPORT INFORMATION
  Report Type: 
  Country: None (occurrence: None)
  Receive Date: 20120117
  Receipt Date: 20120109
  Transmission Date: 20120608
  Serious: Yes (Hospitalization)
  Sender: FDA-Public Use
  Company Number: US-BAYER-2010-002671

PATIENT
  Age: 15 Year
  Sex: Female

DRUGS (2)
  1. PAXIL [Concomitant]
     Dosage: 40 MG, UNK
  2. YASMIN [Suspect]
     Indication: PRODUCT USED FOR UNKNOWN INDICATION
     Dosage: UNK
     Route: 048
     Dates: start: 20040309, end: 20061115

REACTIONS (2)
  - CHOLECYSTITIS [None]
  - GALLBLADDER INJURY [None]
